FAERS Safety Report 9632271 (Version 1)
Quarter: 2013Q4

REPORT INFORMATION
  Report Type: Report from Study
  Country: US (occurrence: US)
  Receive Date: 20131018
  Receipt Date: 20131018
  Transmission Date: 20140711
  Serious: No
  Sender: FDA-Public Use
  Company Number: US-B.I. PHARMACEUTICALS,INC./RIDGEFIELD-2013-BI-31602BP

PATIENT
  Sex: Female

DRUGS (8)
  1. GILOTRIF [Suspect]
     Indication: LUNG CARCINOMA CELL TYPE UNSPECIFIED STAGE 0
     Dosage: 30 MG
     Route: 048
     Dates: start: 20130101
  2. DIGOXIN [Concomitant]
  3. HYDRALAZINE [Concomitant]
  4. PRILOSEC DR [Concomitant]
  5. PROPRANOLOL ER [Concomitant]
  6. LEVOTHYROXINE [Concomitant]
  7. WARFARIN SODIUM [Concomitant]
  8. LOPERAMIDE [Concomitant]

REACTIONS (1)
  - Localised infection [Not Recovered/Not Resolved]
